FAERS Safety Report 16702321 (Version 4)
Quarter: 2019Q4

REPORT INFORMATION
  Report Type: Report from Study
  Country: CR (occurrence: CR)
  Receive Date: 20190814
  Receipt Date: 20191111
  Transmission Date: 20200122
  Serious: Yes (Hospitalization)
  Sender: FDA-Public Use
  Company Number: PHHY2019CR119161

PATIENT
  Age: 64 Year
  Sex: Male

DRUGS (2)
  1. SCAPHO [Suspect]
     Active Substance: SECUKINUMAB
     Dosage: 150 MG, QMO
     Route: 065
  2. SCAPHO [Suspect]
     Active Substance: SECUKINUMAB
     Indication: PSORIASIS
     Dosage: 150 MG, UNK
     Route: 065
     Dates: start: 2019

REACTIONS (11)
  - Peripheral swelling [Unknown]
  - Pain in extremity [Unknown]
  - Skin bacterial infection [Unknown]
  - Joint injury [Unknown]
  - Oedema [Recovering/Resolving]
  - Arthritis [Unknown]
  - Osteomyelitis bacterial [Unknown]
  - Inflammation [Unknown]
  - Pruritus [Unknown]
  - Skin exfoliation [Unknown]
  - Pain [Recovering/Resolving]
